FAERS Safety Report 24005518 (Version 1)
Quarter: 2024Q2

REPORT INFORMATION
  Report Type: Spontaneous
  Country: FR (occurrence: FR)
  Receive Date: 20240624
  Receipt Date: 20240624
  Transmission Date: 20240716
  Serious: Yes (Hospitalization, Other)
  Sender: FDA-Public Use
  Company Number: None

PATIENT
  Age: 53 Year
  Sex: Male
  Weight: 55.3 kg

DRUGS (4)
  1. PIPERACILLIN SODIUM\TAZOBACTAM SODIUM [Suspect]
     Active Substance: PIPERACILLIN SODIUM\TAZOBACTAM SODIUM
     Indication: Diabetic foot infection
     Dosage: 1 DF, 4X/DAY (EVERY 6 HOURS)
     Route: 042
     Dates: start: 20240216, end: 20240219
  2. PIPERACILLIN SODIUM [Suspect]
     Active Substance: PIPERACILLIN SODIUM
     Indication: Diabetic foot infection
     Dosage: 4 G, 4X/DAY (EVERY 6 HOURS)
     Route: 042
     Dates: start: 20240219, end: 20240220
  3. PIPERACILLIN SODIUM [Suspect]
     Active Substance: PIPERACILLIN SODIUM
     Dosage: 4 G, 3X/DAY (EVERY 8 HOURS)
     Route: 042
     Dates: start: 20240220, end: 20240311
  4. CIPROFLOXACIN [Concomitant]
     Active Substance: CIPROFLOXACIN
     Indication: Diabetic foot infection
     Dosage: 750 MG, 2X/DAY (EVERY 12 HOURS)
     Route: 048
     Dates: start: 20240219

REACTIONS (3)
  - Hepatic cytolysis [Recovered/Resolved]
  - Febrile neutropenia [Recovered/Resolved]
  - Rash maculo-papular [Recovered/Resolved]

NARRATIVE: CASE EVENT DATE: 20240311
